FAERS Safety Report 14332069 (Version 15)
Quarter: 2022Q3

REPORT INFORMATION
  Report Type: Spontaneous
  Country: DE (occurrence: DE)
  Receive Date: 20171228
  Receipt Date: 20220913
  Transmission Date: 20221027
  Serious: Yes (Death, Life-Threatening, Hospitalization, Other)
  Sender: FDA-Public Use
  Company Number: None

PATIENT
  Age: 44 Year
  Sex: Female
  Weight: 65 kg

DRUGS (80)
  1. HYDROMORPHONE [Suspect]
     Active Substance: HYDROMORPHONE
     Indication: Malignant melanoma
     Dosage: 4 MILLIGRAM, TWO TIMES A DAY
     Route: 048
     Dates: start: 20170407, end: 20170706
  2. HYDROMORPHONE [Suspect]
     Active Substance: HYDROMORPHONE
     Indication: Pain
     Dosage: 4 MILLIGRAM, 3 TIMES A DAY
     Route: 048
     Dates: start: 20170707, end: 20180224
  3. HYDROMORPHONE [Suspect]
     Active Substance: HYDROMORPHONE
     Dosage: 4 MILLIGRAM, 3 TIMES A DAY
     Route: 048
     Dates: start: 20170707, end: 20180224
  4. HYDROMORPHONE [Suspect]
     Active Substance: HYDROMORPHONE
     Dosage: 8 MILLIGRAM, ONCE A DAY
     Route: 048
     Dates: start: 20180225, end: 20180225
  5. HYDROMORPHONE [Suspect]
     Active Substance: HYDROMORPHONE
     Dosage: 8 MILLIGRAM, 3 TIMES A DAY
     Route: 048
     Dates: start: 20180226
  6. HYDROMORPHONE [Suspect]
     Active Substance: HYDROMORPHONE
     Dosage: 4 MILLIGRAM, 3 TIMES A DAY
     Route: 048
     Dates: start: 20180516
  7. TRAMETINIB [Suspect]
     Active Substance: TRAMETINIB
     Indication: Metastatic malignant melanoma
     Dosage: 2 MILLIGRAM, ONCE A DAY
     Route: 048
     Dates: start: 20161019, end: 20161114
  8. TRAMETINIB [Suspect]
     Active Substance: TRAMETINIB
     Dosage: 2 MILLIGRAM, ONCE A DAY
     Route: 048
     Dates: start: 20161123, end: 20180513
  9. TRAMETINIB [Suspect]
     Active Substance: TRAMETINIB
     Dosage: 2 MILLIGRAM, ONCE A DAY
     Route: 048
     Dates: start: 20161117, end: 20161122
  10. TAFINLAR [Suspect]
     Active Substance: DABRAFENIB MESYLATE
     Indication: Metastatic malignant melanoma
     Dosage: 150 MILLIGRAM, TWO TIMES A DAY
     Route: 048
     Dates: start: 20161019, end: 20161114
  11. TAFINLAR [Suspect]
     Active Substance: DABRAFENIB MESYLATE
     Dosage: 300 MILLIGRAM, ONCE A DAY, 150 MG, BID
     Route: 048
     Dates: start: 20161019, end: 20161114
  12. TAFINLAR [Suspect]
     Active Substance: DABRAFENIB MESYLATE
     Dosage: 300 MILLIGRAM, ONCE A DAY, 150 MG, BID
     Route: 048
     Dates: start: 20161117, end: 20161122
  13. TAFINLAR [Suspect]
     Active Substance: DABRAFENIB MESYLATE
     Dosage: 150 MILLIGRAM, ONCE A DAY
     Route: 048
     Dates: start: 20161117
  14. TAFINLAR [Suspect]
     Active Substance: DABRAFENIB MESYLATE
     Dosage: 150 MILLIGRAM, TWO TIMES A DAY (300 MILLIGRAM, DAILY)
     Route: 048
     Dates: start: 20161117, end: 20161122
  15. TAFINLAR [Suspect]
     Active Substance: DABRAFENIB MESYLATE
     Dosage: 150 MILLIGRAM, TWO TIMES A DAY
     Route: 048
     Dates: start: 20161123, end: 20180513
  16. TAFINLAR [Suspect]
     Active Substance: DABRAFENIB MESYLATE
     Dosage: 2 MILLIGRAM, ONCE A DAY
     Route: 048
     Dates: start: 20161123, end: 20180513
  17. TAFINLAR [Suspect]
     Active Substance: DABRAFENIB MESYLATE
     Dosage: 2 MILLIGRAM, ONCE A DAY
     Route: 048
     Dates: start: 20161117, end: 20161122
  18. ABSTRAL [Concomitant]
     Active Substance: FENTANYL CITRATE
     Indication: Malignant melanoma
     Dosage: 200 MICROGRAM, FOUR TIMES/DAY (800 MICROGRAM ONCE A DAY)
     Route: 048
     Dates: start: 20180516
  19. BETAHISTINE [Concomitant]
     Active Substance: BETAHISTINE
     Indication: Product used for unknown indication
     Dosage: 6 MG, TID
     Route: 048
     Dates: start: 20180225, end: 20180225
  20. BETAHISTINE [Concomitant]
     Active Substance: BETAHISTINE
     Dosage: 6 MG, TID
     Route: 048
     Dates: start: 20180226, end: 20180226
  21. LACTULOSE [Concomitant]
     Active Substance: LACTULOSE
     Indication: Product used for unknown indication
     Dosage: 10 GRAM, ONCE A DAY
     Route: 048
     Dates: start: 20180225, end: 20180225
  22. LACTULOSE [Concomitant]
     Active Substance: LACTULOSE
     Dosage: 10 GRAM, ONCE A DAY
     Route: 048
     Dates: start: 20180312
  23. CIPRALEX [Concomitant]
     Active Substance: ESCITALOPRAM OXALATE
     Indication: Depression
     Dosage: 10 MILLIGRAM, ONCE A DAY, 10 MG, QD
     Route: 048
     Dates: start: 20170518, end: 20180228
  24. CIPRALEX [Concomitant]
     Active Substance: ESCITALOPRAM OXALATE
     Dosage: 10 MILLIGRAM, ONCE A DAY
     Route: 048
     Dates: start: 20180312
  25. ENOXAPARIN SODIUM [Concomitant]
     Active Substance: ENOXAPARIN SODIUM
     Indication: Product used for unknown indication
     Dosage: 40 MILLIGRAM, ONCE A DAY
     Route: 058
     Dates: start: 20180226, end: 20180303
  26. CELEBREX [Concomitant]
     Active Substance: CELECOXIB
     Indication: Product used for unknown indication
     Dosage: 100 MILLIGRAM, ONCE A DAY
     Route: 048
     Dates: start: 20180302
  27. DEXAMETHASONE [Concomitant]
     Active Substance: DEXAMETHASONE
     Indication: Malignant melanoma
     Dosage: 4 MILLIGRAM, ONCE A DAY, 4 MG, QD
     Route: 048
     Dates: start: 20170829, end: 20171128
  28. DEXAMETHASONE [Concomitant]
     Active Substance: DEXAMETHASONE
     Indication: Intracranial pressure increased
     Dosage: 4 MILLIGRAM, ONCE A DAY, 600 MG, QD
     Route: 048
     Dates: start: 20171129
  29. DEXAMETHASONE [Concomitant]
     Active Substance: DEXAMETHASONE
     Dosage: 8 MILLIGRAM, ONCE A DAY
     Route: 042
     Dates: start: 20180225, end: 20180225
  30. DEXAMETHASONE [Concomitant]
     Active Substance: DEXAMETHASONE
     Dosage: 20 MILLIGRAM, ONCE A DAY
     Route: 042
     Dates: start: 20180225, end: 20180225
  31. DEXAMETHASONE [Concomitant]
     Active Substance: DEXAMETHASONE
     Dosage: 8 MILLIGRAM, 3 TIMES A DAY
     Route: 042
     Dates: start: 20180226, end: 20180301
  32. DEXAMETHASONE [Concomitant]
     Active Substance: DEXAMETHASONE
     Dosage: 4 MILLIGRAM, 3 TIMES A DAY
     Route: 048
     Dates: start: 20180302, end: 20180303
  33. DEXAMETHASONE [Concomitant]
     Active Substance: DEXAMETHASONE
     Dosage: 4 MILLIGRAM, TWO TIMES A DAY
     Route: 048
     Dates: start: 20180304, end: 20180318
  34. DEXAMETHASONE [Concomitant]
     Active Substance: DEXAMETHASONE
     Dosage: 24 MILLIGRAM, ONCE A DAY (8 MG, TID )
     Route: 042
     Dates: start: 20180226, end: 20180301
  35. DEXAMETHASONE [Concomitant]
     Active Substance: DEXAMETHASONE
     Dosage: 12 MILLIGRAM, ONCE A DAY(4 MG, TID)
     Route: 048
     Dates: start: 20180302, end: 20180303
  36. IBUPROFEN [Concomitant]
     Active Substance: IBUPROFEN
     Indication: Malignant melanoma
     Dosage: 600 MILLIGRAM, ONCE A DAY
     Route: 048
     Dates: start: 20170214, end: 20170406
  37. IPILIMUMAB [Concomitant]
     Active Substance: IPILIMUMAB
     Indication: Malignant melanoma
     Dosage: 3 MILLIGRAM/KILOGRAM, 3 TIMES A WEEK
     Route: 042
     Dates: start: 20181024, end: 20181024
  38. SODIUM PICOSULFATE [Concomitant]
     Active Substance: SODIUM PICOSULFATE
     Indication: Malignant melanoma
     Dosage: 20 GTT DROPS, ONCE A DAY
     Route: 048
     Dates: start: 20170407, end: 20180225
  39. SODIUM PICOSULFATE [Concomitant]
     Active Substance: SODIUM PICOSULFATE
     Dosage: 20 GTT DROPS, PRN
     Route: 048
     Dates: start: 20180516
  40. Laxans [Concomitant]
     Indication: Product used for unknown indication
     Dosage: 15 GTT DROPS, ONCE A DAY
     Route: 048
     Dates: start: 20180225, end: 20180303
  41. METOCLOPRAMIDE [Concomitant]
     Active Substance: METOCLOPRAMIDE
     Indication: Malignant melanoma
     Dosage: 10 MG, TWO TIMES A DAY
     Route: 048
     Dates: start: 20170118
  42. METOCLOPRAMIDE [Concomitant]
     Active Substance: METOCLOPRAMIDE
     Dosage: 300 MILLIGRAM, ONCE A DAY, 10MG, TID
     Route: 048
     Dates: start: 20170118
  43. METOCLOPRAMIDE [Concomitant]
     Active Substance: METOCLOPRAMIDE
     Dosage: 10 MILLIGRAM, ONCE A DAY, 10 MG, TID
     Route: 048
     Dates: start: 20170118
  44. METOCLOPRAMIDE [Concomitant]
     Active Substance: METOCLOPRAMIDE
     Dosage: 5 MG, TID
     Route: 048
     Dates: start: 20180227, end: 20180227
  45. METOCLOPRAMIDE [Concomitant]
     Active Substance: METOCLOPRAMIDE
     Dosage: 10 MG, TID
     Dates: start: 20180228, end: 20180303
  46. MOVICOL [Concomitant]
     Active Substance: POLYETHYLENE GLYCOL 3350\POTASSIUM CHLORIDE\SODIUM BICARBONATE\SODIUM CHLORIDE
     Indication: Product used for unknown indication
     Dosage: 13.81 GRAM, ONCE A DAY, 13.81 G, QD
     Route: 048
     Dates: start: 20170829, end: 20171128
  47. MCP [Concomitant]
     Active Substance: METOCLOPRAMIDE HYDROCHLORIDE
     Indication: Malignant melanoma
     Dosage: 10 MILLIGRAM, 3 TIMES A DAY
     Route: 048
     Dates: start: 20170118
  48. MCP [Concomitant]
     Active Substance: METOCLOPRAMIDE HYDROCHLORIDE
     Dosage: 10 MILLIGRAM, 3 TIMES A DAY
     Route: 048
     Dates: start: 20170118, end: 20180224
  49. MCP [Concomitant]
     Active Substance: METOCLOPRAMIDE HYDROCHLORIDE
     Dosage: 5 MILLIGRAM, TWO TIMES A DAY
     Route: 048
     Dates: start: 20180226, end: 20180226
  50. MCP [Concomitant]
     Active Substance: METOCLOPRAMIDE HYDROCHLORIDE
     Dosage: 5 MILLIGRAM, 3 TIMES A DAY
     Route: 048
     Dates: start: 20180227, end: 20180227
  51. MCP [Concomitant]
     Active Substance: METOCLOPRAMIDE HYDROCHLORIDE
     Dosage: 10 MILLIGRAM, 3 TIMES A DAY
     Route: 048
     Dates: start: 20180228, end: 20180303
  52. MCP [Concomitant]
     Active Substance: METOCLOPRAMIDE HYDROCHLORIDE
     Dosage: 30 MILLIGRAM, ONCE A DAY(10 MG, TID )
     Route: 048
     Dates: start: 20180228, end: 20180303
  53. MIRTAZAPINE [Concomitant]
     Active Substance: MIRTAZAPINE
     Indication: Product used for unknown indication
     Dosage: 15 MILLIGRAM, ONCE A DAY
     Route: 048
     Dates: start: 20170920, end: 20170922
  54. NIVOLUMAB [Concomitant]
     Active Substance: NIVOLUMAB
     Indication: Malignant melanoma
     Dosage: 1 MILLIGRAM/KILOGRAM, EVERY 3 WEEKS
     Route: 042
     Dates: start: 20181024, end: 20181024
  55. METAMIZOLE SODIUM [Concomitant]
     Active Substance: METAMIZOLE SODIUM
     Indication: Malignant melanoma
     Dosage: 500 MILLIGRAM, PRN
     Route: 048
     Dates: start: 20161115, end: 20170406
  56. METAMIZOLE SODIUM [Concomitant]
     Active Substance: METAMIZOLE SODIUM
     Dosage: 100 MILLIGRAM, 3 TIMES A DAY
     Route: 048
     Dates: start: 20170407, end: 20170916
  57. METAMIZOLE SODIUM [Concomitant]
     Active Substance: METAMIZOLE SODIUM
     Dosage: 1000 MILLIGRAM, 3 TIMES A DAY
     Route: 048
     Dates: start: 20170829
  58. METAMIZOLE SODIUM [Concomitant]
     Active Substance: METAMIZOLE SODIUM
     Dosage: 100 MILLIGRAM, TWO TIMES A DAY
     Route: 048
     Dates: start: 20170917, end: 20170917
  59. METAMIZOLE SODIUM [Concomitant]
     Active Substance: METAMIZOLE SODIUM
     Dosage: 1000 MILLIGRAM, ONCE A DAY
     Route: 048
     Dates: start: 20170917, end: 20170917
  60. METAMIZOLE SODIUM [Concomitant]
     Active Substance: METAMIZOLE SODIUM
     Dosage: 1 GRAM, 3 TIMES A DAY
     Route: 048
     Dates: start: 20180516
  61. METAMIZOLE SODIUM [Concomitant]
     Active Substance: METAMIZOLE SODIUM
     Dosage: 750 MILLIGRAM, THREE TIMES AS NEEDED
     Route: 065
     Dates: start: 20180516
  62. Ortoton [Concomitant]
     Indication: Product used for unknown indication
     Dosage: 750 MILLIGRAM, THREE TIMES AS NEEDED
     Route: 048
     Dates: start: 20180516
  63. PANTOPRAZOLE SODIUM [Concomitant]
     Active Substance: PANTOPRAZOLE SODIUM
     Indication: Malignant melanoma
     Dosage: 40 MILLIGRAM, ONCE A DAY
     Route: 048
     Dates: start: 20170829
  64. HYDROMORPHONE [Concomitant]
     Active Substance: HYDROMORPHONE
     Indication: Malignant melanoma
     Dosage: 1.3 MILLIGRAM, PRN (UPTO QD AS NEEDED, 2 HOUR MINIMUM IN BETWEEN)
     Route: 048
     Dates: start: 20170407
  65. PEMBROLIZUMAB [Concomitant]
     Active Substance: PEMBROLIZUMAB
     Indication: Malignant melanoma
     Dosage: 2 MILLIGRAM/KILOGRAM, ONCE A DAY
     Route: 048
     Dates: start: 20180517, end: 20181002
  66. PREGABALIN [Concomitant]
     Active Substance: PREGABALIN
     Indication: Depressed mood
     Dosage: 75 MILLIGRAM, ONCE A DAY, 75 MG, QD
     Route: 048
     Dates: start: 20170829, end: 20170905
  67. PREGABALIN [Concomitant]
     Active Substance: PREGABALIN
     Dosage: 75 MILLIGRAM, ONCE A DAY, 75 MG, BID
     Route: 048
     Dates: start: 20170906, end: 20180224
  68. PREGABALIN [Concomitant]
     Active Substance: PREGABALIN
     Dosage: 75 MILLIGRAM, TWO TIMES A DAY
     Route: 048
     Dates: start: 20170906, end: 20180224
  69. PREGABALIN [Concomitant]
     Active Substance: PREGABALIN
     Dosage: 150 MILLIGRAM, ONCE A DAY, 150 MG, QD
     Route: 048
     Dates: start: 20171129
  70. PREGABALIN [Concomitant]
     Active Substance: PREGABALIN
     Dosage: 100 MILLIGRAM, ONCE A DAY
     Route: 048
     Dates: start: 20180225
  71. PREGABALIN [Concomitant]
     Active Substance: PREGABALIN
     Dosage: 75 MILLIGRAM, TWO TIMES A DAY
     Route: 048
     Dates: start: 20180225
  72. NALOXONE HYDROCHLORIDE\TILIDINE HYDROCHLORIDE [Concomitant]
     Active Substance: NALOXONE HYDROCHLORIDE\TILIDINE HYDROCHLORIDE
     Indication: Product used for unknown indication
     Dosage: 50 MILLIGRAM, PRN
     Route: 048
     Dates: start: 20161115
  73. ZOFRAN [Concomitant]
     Active Substance: ONDANSETRON HYDROCHLORIDE
     Indication: Malignant melanoma
     Dosage: 8 MILLIGRAM, ONCE A DAY, 8 MG, BID
     Route: 048
     Dates: start: 20161115, end: 20170307
  74. ZOFRAN [Concomitant]
     Active Substance: ONDANSETRON HYDROCHLORIDE
     Dosage: 16 MILLIGRAM, ONCE A DAY, 8 MG, BID
     Route: 048
     Dates: start: 20161115
  75. ZOFRAN [Concomitant]
     Active Substance: ONDANSETRON HYDROCHLORIDE
     Dosage: 8 MILLIGRAM, PRN
     Route: 048
     Dates: start: 20170308, end: 20180225
  76. ZOFRAN [Concomitant]
     Active Substance: ONDANSETRON HYDROCHLORIDE
     Dosage: 4 MILLIGRAM, TWO TIMES A DAY
     Route: 042
     Dates: start: 20180226, end: 20180226
  77. ZOFRAN [Concomitant]
     Active Substance: ONDANSETRON HYDROCHLORIDE
     Dosage: 4 MILLIGRAM, 3 TIMES A DAY
     Route: 042
     Dates: start: 20180227, end: 20180302
  78. ZOFRAN [Concomitant]
     Active Substance: ONDANSETRON HYDROCHLORIDE
     Dosage: 4 MILLIGRAM, ONCE A DAY
     Route: 048
     Dates: start: 20180302, end: 20180302
  79. ZOFRAN [Concomitant]
     Active Substance: ONDANSETRON HYDROCHLORIDE
     Dosage: 4 MILLIGRAM, ONCE A DAY
     Route: 048
     Dates: start: 20180303, end: 20180303
  80. ZOFRAN [Concomitant]
     Active Substance: ONDANSETRON HYDROCHLORIDE
     Dosage: 8 MILLIGRAM, 3 TIMES A DAY
     Route: 048
     Dates: start: 20180312

REACTIONS (10)
  - Metastatic malignant melanoma [Fatal]
  - Malignant neoplasm progression [Fatal]
  - Intracranial pressure increased [Recovered/Resolved]
  - Abdominal pain [Recovered/Resolved]
  - Constipation [Recovered/Resolved]
  - Nausea [Unknown]
  - Arthralgia [Not Recovered/Not Resolved]
  - Myalgia [Not Recovered/Not Resolved]
  - Ageusia [Not Recovered/Not Resolved]
  - Dry skin [Not Recovered/Not Resolved]

NARRATIVE: CASE EVENT DATE: 20170118
